FAERS Safety Report 10886044 (Version 1)
Quarter: 2015Q1

REPORT INFORMATION
  Report Type: Spontaneous
  Country: US (occurrence: None)
  Receive Date: 20150227
  Receipt Date: 20150227
  Transmission Date: 20150721
  Serious: No
  Sender: FDA-Public Use
  Company Number: None

PATIENT
  Age: 57 Year
  Sex: Female

DRUGS (16)
  1. RIBIF [Concomitant]
  2. BACLOFEN. [Concomitant]
     Active Substance: BACLOFEN
  3. CLOBETASOL [Concomitant]
     Active Substance: CLOBETASOL
  4. NAPROXEN. [Concomitant]
     Active Substance: NAPROXEN
  5. KETOCONAZOLE. [Concomitant]
     Active Substance: KETOCONAZOLE
  6. TRIAMCINOLONE ACETONIDE. [Concomitant]
     Active Substance: TRIAMCINOLONE ACETONIDE
  7. AMPYRA [Suspect]
     Active Substance: DALFAMPRIDINE
     Indication: MULTIPLE SCLEROSIS
     Route: 048
     Dates: start: 201204
  8. FLUOCINONIDE. [Concomitant]
     Active Substance: FLUOCINONIDE
  9. ATENOLOL. [Concomitant]
     Active Substance: ATENOLOL
  10. CITALOPRAM [Concomitant]
     Active Substance: CITALOPRAM HYDROBROMIDE
  11. TIZANIDINE (TIZANIDINE) [Concomitant]
     Active Substance: TIZANIDINE
  12. AZO STANDARD 95MG ORAL TAB [Concomitant]
  13. NITROFURANTOIN. [Concomitant]
     Active Substance: NITROFURANTOIN
  14. OXYBUTYNIN [Concomitant]
     Active Substance: OXYBUTYNIN
  15. K-TAB [Concomitant]
     Active Substance: POTASSIUM CHLORIDE
  16. LISINOPRIL-HCTZ [Concomitant]
     Active Substance: HYDROCHLOROTHIAZIDE\LISINOPRIL

REACTIONS (1)
  - Urinary tract infection [None]

NARRATIVE: CASE EVENT DATE: 20140909
